FAERS Safety Report 6275962-0 (Version None)
Quarter: 2009Q3

REPORT INFORMATION
  Report Type: 
  Country: None (occurrence: None)
  Receive Date: 20090721
  Receipt Date: 20090710
  Transmission Date: 20100115
  Serious: Yes (Other)
  Sender: FDA-Public Use
  Company Number: JP-ASTRAZENECA-2009SE02572

PATIENT
  Age: 88 Year
  Sex: Female
  Weight: 31 kg

DRUGS (10)
  1. ANAPEINE INJECTION [Suspect]
     Indication: NERVE BLOCK
     Route: 053
     Dates: start: 20090606, end: 20090606
  2. ULTIVA [Concomitant]
     Indication: GENERAL ANAESTHESIA
     Route: 042
     Dates: start: 20090606, end: 20090606
  3. PROPOFOL [Concomitant]
     Indication: GENERAL ANAESTHESIA
     Route: 042
     Dates: start: 20090606, end: 20090606
  4. PROPOFOL [Concomitant]
     Route: 042
     Dates: start: 20090606, end: 20090606
  5. ESLAX [Concomitant]
     Indication: GENERAL ANAESTHESIA
     Route: 042
     Dates: start: 20090606, end: 20090606
  6. SEVOFLURANE [Concomitant]
     Indication: GENERAL ANAESTHESIA
     Route: 055
     Dates: start: 20090606, end: 20090606
  7. PERDIPINE [Concomitant]
     Indication: HYPERTENSION
     Route: 042
     Dates: start: 20090606, end: 20090606
  8. ONOACT [Concomitant]
     Indication: ATRIAL FIBRILLATION
     Dosage: STARTED AT 2MCG/KG/MIN, SUBSEQUENTLY INCREASED TO 5MCG/KG/MIN
     Route: 041
     Dates: start: 20090606, end: 20090606
  9. FENTANYL-100 [Concomitant]
     Indication: POSTOPERATIVE ANALGESIA
     Dosage: 30MCG/HR
     Route: 041
     Dates: start: 20090606, end: 20090609
  10. HANP [Concomitant]
     Indication: CARDIAC FAILURE CONGESTIVE
     Dosage: 40MCG/HR
     Route: 041
     Dates: start: 20090606, end: 20090610

REACTIONS (1)
  - DELAYED RECOVERY FROM ANAESTHESIA [None]
